FAERS Safety Report 12140230 (Version 1)
Quarter: 2016Q1

REPORT INFORMATION
  Report Type: Spontaneous
  Country: US (occurrence: None)
  Receive Date: 20160302
  Receipt Date: 20160302
  Transmission Date: 20160526
  Serious: Yes (Disabling)
  Sender: FDA-Public Use
  Company Number: None

PATIENT
  Age: 61 Year
  Sex: Female
  Weight: 78.02 kg

DRUGS (1)
  1. CRESTOR [Suspect]
     Active Substance: ROSUVASTATIN CALCIUM
     Indication: BLOOD CHOLESTEROL INCREASED
     Route: 048

REACTIONS (13)
  - Gait disturbance [None]
  - Activities of daily living impaired [None]
  - Liver function test abnormal [None]
  - Pain [None]
  - Drug hypersensitivity [None]
  - Confusional state [None]
  - Muscle disorder [None]
  - Aphasia [None]
  - Renal function test abnormal [None]
  - Fatigue [None]
  - Impaired work ability [None]
  - Memory impairment [None]
  - Glycosylated haemoglobin increased [None]
